FAERS Safety Report 17053093 (Version 1)
Quarter: 2019Q4

REPORT INFORMATION
  Report Type: Spontaneous
  Country: US (occurrence: US)
  Receive Date: 20191120
  Receipt Date: 20191120
  Transmission Date: 20200122
  Serious: No
  Sender: FDA-Public Use
  Company Number: US-PFIZER INC-2019496476

PATIENT
  Age: 36 Year
  Sex: Female
  Weight: 99.77 kg

DRUGS (2)
  1. SILDENAFIL CITRATE. [Suspect]
     Active Substance: SILDENAFIL CITRATE
     Dosage: UNK
     Dates: end: 20191017
  2. TYVASO [Suspect]
     Active Substance: TREPROSTINIL
     Indication: PULMONARY ARTERIAL HYPERTENSION
     Dosage: UNK UNK, 4X/DAY (3-9 BREATHS INHALED)
     Route: 055
     Dates: start: 20191007

REACTIONS (1)
  - Palpitations [Unknown]
